FAERS Safety Report 25820015 (Version 3)
Quarter: 2025Q4

REPORT INFORMATION
  Report Type: Spontaneous
  Country: SA (occurrence: SA)
  Receive Date: 20250918
  Receipt Date: 20251015
  Transmission Date: 20260118
  Serious: Yes (Hospitalization)
  Sender: BEIGENE
  Company Number: SA-BEIGENE-BGN-2025-015859

PATIENT
  Age: 83 Year

DRUGS (1)
  1. BRUKINSA [Suspect]
     Active Substance: ZANUBRUTINIB
     Indication: Marginal zone lymphoma
     Dosage: 180 MILLIGRAM

REACTIONS (4)
  - Hyponatraemia [Recovered/Resolved]
  - Diabetes mellitus inadequate control [Unknown]
  - Urinary tract infection [Unknown]
  - Leukocytosis [Unknown]
